FAERS Safety Report 4758731-X (Version None)
Quarter: 2005Q3

REPORT INFORMATION
  Report Type: 
  Country: None (occurrence: None)
  Receive Date: 20050901
  Receipt Date: 20050822
  Transmission Date: 20060218
  Serious: Yes (Death, Hospitalization, Other)
  Sender: FDA-Public Use
  Company Number: FR-ABBOTT-05P-056-0309031-00

PATIENT
  Age: 42 Year
  Sex: Male

DRUGS (4)
  1. RITONAVIR [Suspect]
     Indication: HIV INFECTION
  2. SAQUINAVIR [Concomitant]
     Indication: HIV INFECTION
  3. ZIDOVUDINE [Concomitant]
     Indication: HIV INFECTION
     Dates: start: 19960901
  4. LAMIVUDINE [Concomitant]
     Indication: HIV INFECTION
     Dates: start: 19960901

REACTIONS (2)
  - GENERALISED OEDEMA [None]
  - PORTAL VEIN THROMBOSIS [None]
